FAERS Safety Report 5870090-8 (Version None)
Quarter: 2008Q3

REPORT INFORMATION
  Report Type: 
  Country: None (occurrence: None)
  Receive Date: 20080902
  Receipt Date: 20080814
  Transmission Date: 20090109
  Serious: Yes (Death, Hospitalization)
  Sender: FDA-Public Use
  Company Number: 1000000514

PATIENT
  Age: 70 Year
  Sex: Male
  Weight: 94.8018 kg

DRUGS (17)
  1. NAMENDA [Suspect]
     Indication: DEMENTIA ALZHEIMER'S TYPE
     Dosage: 5 MG (5 MG, 1 IN 1 D), ORAL, 10 MG (5 MG, 2 IN 1 D), ORAL, 15MG (15 MG), 20 MG (10 MG, 2 IN 1 D), OR
     Route: 048
     Dates: start: 20071001, end: 20071007
  2. NAMENDA [Suspect]
     Indication: DEMENTIA ALZHEIMER'S TYPE
     Dosage: 5 MG (5 MG, 1 IN 1 D), ORAL, 10 MG (5 MG, 2 IN 1 D), ORAL, 15MG (15 MG), 20 MG (10 MG, 2 IN 1 D), OR
     Route: 048
     Dates: start: 20071008, end: 20071014
  3. NAMENDA [Suspect]
     Indication: DEMENTIA ALZHEIMER'S TYPE
     Dosage: 5 MG (5 MG, 1 IN 1 D), ORAL, 10 MG (5 MG, 2 IN 1 D), ORAL, 15MG (15 MG), 20 MG (10 MG, 2 IN 1 D), OR
     Route: 048
     Dates: start: 20071015, end: 20071021
  4. NAMENDA [Suspect]
     Indication: DEMENTIA ALZHEIMER'S TYPE
     Dosage: 5 MG (5 MG, 1 IN 1 D), ORAL, 10 MG (5 MG, 2 IN 1 D), ORAL, 15MG (15 MG), 20 MG (10 MG, 2 IN 1 D), OR
     Route: 048
     Dates: start: 20071022, end: 20071208
  5. AGGRENOX [Concomitant]
  6. LIPITOR (20 MILLIGRAM, TABLETS) [Concomitant]
  7. ARICEPT [Concomitant]
  8. AVODART (0.5 MILLIGRAM, CAPSULES) [Concomitant]
  9. GLIPIZIDE (5 MILLIGRAM, TABLETS) [Concomitant]
  10. HEPARIN (5000 IU (INTERNATIONAL UNIT), INJECTION [Concomitant]
  11. LANTUS (15 IU (INTERNATIONAL UNIT, INJECTION) [Concomitant]
  12. LISINOPRIL (20 MILLGRAM, TABLETS) [Concomitant]
  13. GLUCOPHAGE (500 MILLIGRAM, TABLETS) [Concomitant]
  14. LOPRESSOR (50 MILLIGRAM, TABLETS) [Concomitant]
  15. FLOMAX (0.4 MILLIGRAM, CAPSULES) [Concomitant]
  16. TYLENOL (650 MILLIGRAM, TABLETS) [Concomitant]
  17. AMBIEN (5 MILLIGRAM, TABLETS) [Concomitant]

REACTIONS (11)
  - AGITATION [None]
  - BACK PAIN [None]
  - BLOOD PRESSURE INCREASED [None]
  - CEREBRAL ATROPHY [None]
  - ENCEPHALOPATHY [None]
  - HALLUCINATION [None]
  - HYPOPHAGIA [None]
  - MOBILITY DECREASED [None]
  - NORMAL PRESSURE HYDROCEPHALUS [None]
  - SINUSITIS [None]
  - URINARY TRACT INFECTION [None]
